FAERS Safety Report 15284954 (Version 1)
Quarter: 2018Q3

REPORT INFORMATION
  Report Type: Spontaneous
  Country: US (occurrence: US)
  Receive Date: 20180801
  Receipt Date: 20180801
  Transmission Date: 20181010
  Serious: Yes (Other)
  Sender: FDA-Public Use
  Company Number: None

PATIENT
  Age: 40 Year
  Sex: Female

DRUGS (3)
  1. METRONIDAZOLE. [Concomitant]
     Active Substance: METRONIDAZOLE
     Dates: start: 20180726, end: 20180801
  2. FLUCONAZOLE. [Suspect]
     Active Substance: FLUCONAZOLE
     Indication: VULVOVAGINAL MYCOTIC INFECTION
     Dosage: ?          OTHER FREQUENCY:AS SINGLE DOSE;?
     Route: 048
     Dates: start: 20180726, end: 20180726
  3. ERGOCALCIFEROL. [Concomitant]
     Active Substance: ERGOCALCIFEROL
     Dates: start: 20180524

REACTIONS (1)
  - Lip swelling [None]

NARRATIVE: CASE EVENT DATE: 20180726
